FAERS Safety Report 14185598 (Version 1)
Quarter: 2017Q4

REPORT INFORMATION
  Report Type: Spontaneous
  Country: US (occurrence: US)
  Receive Date: 20171112
  Receipt Date: 20171112
  Transmission Date: 20180321
  Serious: Yes (Life-Threatening, Other)
  Sender: FDA-Public Use
  Company Number: None

PATIENT
  Age: 57 Year
  Sex: Female
  Weight: 45 kg

DRUGS (1)
  1. NEOSPORIN PLUS PAIN RELIEF FIRST AID ANTIBIOTIC/PAIN RELIEVING [Suspect]
     Active Substance: NEOMYCIN\POLYMYXIN B\PRAMOXINE HYDROCHLORIDE
     Indication: SKIN ABRASION
     Dates: start: 20160827, end: 20160827

REACTIONS (7)
  - Scar [None]
  - Infection [None]
  - Pain [None]
  - Application site burn [None]
  - Burns third degree [None]
  - Pruritus [None]
  - Skin discolouration [None]

NARRATIVE: CASE EVENT DATE: 20160827
